FAERS Safety Report 10904003 (Version 1)
Quarter: 2015Q1

REPORT INFORMATION
  Report Type: Spontaneous
  Country: FR (occurrence: None)
  Receive Date: 20150306
  Receipt Date: 20150306
  Transmission Date: 20150721
  Serious: Yes (Other)
  Sender: FDA-Public Use
  Company Number: FR-H14001-15-00326

PATIENT
  Age: 55 Year
  Sex: Male

DRUGS (3)
  1. CERUBIDIN [Suspect]
     Active Substance: DAUNORUBICIN
     Indication: ACUTE LEUKAEMIA
     Route: 042
     Dates: start: 20080315, end: 20080317
  2. CYTARABINE (CYTARABINE)(UNKNOWN) [Suspect]
     Active Substance: CYTARABINE
     Indication: ACUTE LEUKAEMIA
     Route: 042
     Dates: start: 20080315, end: 20080321
  3. MYLOTARG [Suspect]
     Active Substance: GEMTUZUMAB OZOGAMICIN
     Indication: ACUTE LEUKAEMIA
     Route: 042
     Dates: start: 20080318, end: 20080318

REACTIONS (1)
  - Febrile bone marrow aplasia [None]

NARRATIVE: CASE EVENT DATE: 20080321
